FAERS Safety Report 7656360-1 (Version None)
Quarter: 2011Q3

REPORT INFORMATION
  Report Type: 
  Country: None (occurrence: None)
  Receive Date: 20110804
  Receipt Date: 20110715
  Transmission Date: 20111222
  Serious: Yes (Death, Hospitalization)
  Sender: FDA-Public Use
  Company Number: US-GLAXOSMITHKLINE-A0885745A

PATIENT
  Age: 68 Year
  Sex: Male
  Weight: 113 kg

DRUGS (11)
  1. NEURONTIN [Concomitant]
  2. STARLIX [Concomitant]
  3. AVANDIA [Suspect]
     Indication: DIABETES MELLITUS
     Dosage: 4MG TWICE PER DAY
     Route: 048
     Dates: start: 20070101, end: 20081218
  4. VERAPAMIL [Concomitant]
  5. AVANDARYL [Suspect]
     Indication: DIABETES MELLITUS
     Route: 048
     Dates: end: 20070101
  6. LORAZEPAM [Concomitant]
  7. TRAMADOL HCL [Concomitant]
  8. CLONIDINE [Concomitant]
  9. GEMFIBROZIL [Concomitant]
  10. AVALIDE [Concomitant]
  11. LORTAB [Concomitant]

REACTIONS (3)
  - ARRHYTHMIA [None]
  - DEATH [None]
  - MYOCARDIAL INFARCTION [None]
